FAERS Safety Report 21462186 (Version 1)
Quarter: 2022Q4

REPORT INFORMATION
  Report Type: Report from Study
  Country: PH (occurrence: PH)
  Receive Date: 20221016
  Receipt Date: 20221016
  Transmission Date: 20230112
  Serious: Yes (Death, Hospitalization, Other)
  Sender: FDA-Public Use
  Company Number: PH-JNJFOC-20221003262

PATIENT
  Age: 78 Year
  Sex: Male

DRUGS (2)
  1. ABIRATERONE ACETATE [Suspect]
     Active Substance: ABIRATERONE ACETATE
     Indication: Prostate cancer metastatic
     Dosage: THERAPY START DATE: FEB-2022 OR MAR-2022.
     Route: 048
     Dates: end: 202206
  2. PREDNISONE [Concomitant]
     Active Substance: PREDNISONE
     Indication: Product used for unknown indication
     Dosage: THERAPY START DATE: FEB-2022 OR MAR-2022.
     Route: 048
     Dates: end: 202206

REACTIONS (6)
  - Prostate cancer [Fatal]
  - Haemoglobin decreased [Unknown]
  - Loss of consciousness [Unknown]
  - Insomnia [Unknown]
  - Eating disorder symptom [Unknown]
  - Disturbance in attention [Unknown]

NARRATIVE: CASE EVENT DATE: 20220601
